FAERS Safety Report 19573226 (Version 2)
Quarter: 2021Q3

REPORT INFORMATION
  Report Type: Spontaneous
  Country: PL (occurrence: PL)
  Receive Date: 20210717
  Receipt Date: 20210729
  Transmission Date: 20211014
  Serious: Yes (Hospitalization, Other)
  Sender: FDA-Public Use
  Company Number: PL-AUROBINDO-AUR-APL-2021-030046

PATIENT
  Age: 62 Year
  Sex: Female

DRUGS (6)
  1. LAMOTRIGINE. [Suspect]
     Active Substance: LAMOTRIGINE
     Dosage: 100 MILLIGRAM, ONCE A DAY
     Route: 065
  2. LACOSAMIDE. [Suspect]
     Active Substance: LACOSAMIDE
     Indication: EPILEPSY
     Dosage: 200 MILLIGRAM, ONCE A DAY
     Route: 065
     Dates: start: 2016
  3. PRIDINOL [Suspect]
     Active Substance: PRIDINOL
     Indication: EPILEPSY
     Dosage: UNK
     Route: 065
     Dates: start: 2020
  4. LAMOTRIGINE. [Suspect]
     Active Substance: LAMOTRIGINE
     Indication: EPILEPSY
     Dosage: 250 MILLIGRAM, ONCE A DAY
     Route: 065
     Dates: start: 2017
  5. VALPROIC ACID. [Suspect]
     Active Substance: VALPROIC ACID
     Indication: EPILEPSY
     Dosage: 1000 MILLIGRAM, ONCE A DAY
     Route: 065
  6. VALPROIC ACID. [Suspect]
     Active Substance: VALPROIC ACID
     Dosage: 1.5 GRAM, ONCE A DAY
     Route: 065

REACTIONS (17)
  - Cerebellar syndrome [Recovering/Resolving]
  - Head titubation [Recovering/Resolving]
  - Loss of personal independence in daily activities [Recovering/Resolving]
  - Nystagmus [Recovering/Resolving]
  - Cognitive disorder [Recovering/Resolving]
  - Balance disorder [Recovering/Resolving]
  - Dysmetria [Recovering/Resolving]
  - Arteriosclerosis [Recovering/Resolving]
  - Intention tremor [Recovering/Resolving]
  - Therapeutic product effect incomplete [Recovering/Resolving]
  - Limb discomfort [Recovering/Resolving]
  - Tremor [Recovering/Resolving]
  - Disability [Recovering/Resolving]
  - Neurological symptom [Recovering/Resolving]
  - Drug interaction [Recovering/Resolving]
  - Resting tremor [Recovering/Resolving]
  - Cerebral atrophy [Recovering/Resolving]

NARRATIVE: CASE EVENT DATE: 202007
